FAERS Safety Report 21381036 (Version 4)
Quarter: 2023Q2

REPORT INFORMATION
  Report Type: Report from Study
  Country: BY (occurrence: BY)
  Receive Date: 20220927
  Receipt Date: 20230608
  Transmission Date: 20230722
  Serious: Yes (Other)
  Sender: FDA-Public Use
  Company Number: BY-MYLANLABS-2022M1096457

PATIENT
  Age: 41 Year
  Sex: Female
  Weight: 67 kg

DRUGS (9)
  1. PRETOMANID [Suspect]
     Active Substance: PRETOMANID
     Indication: Product used for unknown indication
     Dosage: 200 MILLIGRAM, QD
     Route: 048
     Dates: start: 20220816, end: 20220920
  2. PRETOMANID [Suspect]
     Active Substance: PRETOMANID
     Dosage: UNK
     Route: 065
  3. BEDAQUILINE [Suspect]
     Active Substance: BEDAQUILINE
     Indication: Product used for unknown indication
     Dosage: 400 MILLIGRAM, QD (FOR 2 WEEKS)
     Route: 048
     Dates: start: 20220816, end: 20220920
  4. BEDAQUILINE [Suspect]
     Active Substance: BEDAQUILINE
     Dosage: 200 MILLIGRAM, Q3W
     Route: 048
     Dates: start: 20220816, end: 20220920
  5. LINEZOLID [Suspect]
     Active Substance: LINEZOLID
     Indication: Product used for unknown indication
     Dosage: 600 MILLIGRAM, QD
     Route: 048
     Dates: start: 20220816, end: 20220920
  6. MOXIFLOXACIN [Suspect]
     Active Substance: MOXIFLOXACIN
     Indication: Product used for unknown indication
     Dosage: 400 MILLIGRAM, QD
     Route: 048
     Dates: start: 20220816, end: 20220920
  7. SODIUM CHLORIDE [Concomitant]
     Active Substance: SODIUM CHLORIDE
     Indication: Detoxification
     Dosage: 500 MILLILITER, QD
     Route: 042
  8. DEXTROSE [Concomitant]
     Active Substance: DEXTROSE\DEXTROSE MONOHYDRATE
     Indication: Detoxification
     Dosage: 500 MILLILITER, QD, START: 20-SEP-2022
     Route: 042
  9. Hepasil [Concomitant]
     Indication: Hepatitis toxic
     Dosage: 210 MILLIGRAM, QD, START: 20-SEP-2022
     Route: 048

REACTIONS (6)
  - Hepatitis toxic [Unknown]
  - Aspartate aminotransferase increased [Not Recovered/Not Resolved]
  - Alanine aminotransferase increased [Not Recovered/Not Resolved]
  - Blood bilirubin increased [Not Recovered/Not Resolved]
  - Product dose omission issue [Unknown]
  - Drug ineffective [Unknown]

NARRATIVE: CASE EVENT DATE: 20220913
